FAERS Safety Report 5534164-3 (Version None)
Quarter: 2007Q4

REPORT INFORMATION
  Report Type: 
  Country: None (occurrence: None)
  Receive Date: 20071129
  Receipt Date: 20071129
  Transmission Date: 20080405
  Serious: Yes (Hospitalization)
  Sender: FDA-Public Use
  Company Number: None

PATIENT
  Sex: Male
  Weight: 79 kg

DRUGS (5)
  1. CISPLATIN [Suspect]
     Dosage: 183 MG
  2. LISINOPRIL [Concomitant]
  3. ATIVAN [Concomitant]
  4. FENTANYL TRANSDERMAL SYSTEM [Concomitant]
  5. OXYCODONE HCL [Concomitant]

REACTIONS (11)
  - BALANCE DISORDER [None]
  - BLOOD PRESSURE DIASTOLIC DECREASED [None]
  - DEHYDRATION [None]
  - DYSPHAGIA [None]
  - EPISTAXIS [None]
  - EXCORIATION [None]
  - HEAD INJURY [None]
  - NAUSEA [None]
  - PAIN [None]
  - VOMITING [None]
  - WHEELCHAIR USER [None]
